FAERS Safety Report 20348077 (Version 1)
Quarter: 2022Q1

REPORT INFORMATION
  Report Type: Spontaneous
  Country: CA (occurrence: CA)
  Receive Date: 20220118
  Receipt Date: 20220118
  Transmission Date: 20220424
  Serious: Yes (Death)
  Sender: FDA-Public Use
  Company Number: CA-BAXTER-2022BAX000680

PATIENT
  Age: 25 Year
  Sex: Male

DRUGS (2)
  1. FORANE [Suspect]
     Active Substance: ISOFLURANE
     Indication: Product used for unknown indication
     Route: 055
  2. SEVOFLURANE [Suspect]
     Active Substance: SEVOFLURANE
     Indication: Product used for unknown indication
     Dosage: DOSAGE FORM: LIQUID INHALATION
     Route: 065

REACTIONS (1)
  - Death [Fatal]
